FAERS Safety Report 4720462-X (Version None)
Quarter: 2005Q3

REPORT INFORMATION
  Report Type: 
  Country: None (occurrence: None)
  Receive Date: 20050721
  Receipt Date: 20040217
  Transmission Date: 20060218
  Serious: No
  Sender: FDA-Public Use
  Company Number: US-BRISTOL-MYERS SQUIBB COMPANY-12515219

PATIENT
  Age: 68 Year
  Sex: Female
  Weight: 87 kg

DRUGS (6)
  1. GLUCOVANCE [Suspect]
     Indication: DIABETES MELLITUS
     Route: 048
  2. AVAPRO [Concomitant]
  3. ZOCOR [Concomitant]
  4. LASIX [Concomitant]
  5. MAGNESIUM [Concomitant]
  6. VITAMIN E [Concomitant]

REACTIONS (1)
  - BLOOD GLUCOSE FLUCTUATION [None]
